FAERS Safety Report 6280439-2 (Version None)
Quarter: 2009Q3

REPORT INFORMATION
  Report Type: 
  Country: None (occurrence: None)
  Receive Date: 20090724
  Receipt Date: 20090318
  Transmission Date: 20100115
  Serious: No
  Sender: FDA-Public Use
  Company Number: A0571628A

PATIENT
  Age: 61 Year
  Sex: Male

DRUGS (4)
  1. AVANDIA [Suspect]
     Indication: DRUG USE FOR UNKNOWN INDICATION
     Dosage: 4MG PER DAY
     Route: 048
     Dates: start: 20040401
  2. TRIAMTERENE AND HYDROCHLOROTHIAZIDE [Concomitant]
  3. DILANTIN [Concomitant]
  4. AMARYL [Concomitant]

REACTIONS (4)
  - ADVERSE EVENT [None]
  - DYSURIA [None]
  - HEART RATE INCREASED [None]
  - PALPITATIONS [None]
